FAERS Safety Report 16760603 (Version 1)
Quarter: 2019Q4

REPORT INFORMATION
  Report Type: Spontaneous
  Country: US (occurrence: US)
  Receive Date: 20190830
  Receipt Date: 20190830
  Transmission Date: 20200122
  Serious: Yes (Other)
  Sender: FDA-Public Use
  Company Number: None

PATIENT
  Sex: Female

DRUGS (1)
  1. COL OPTIC WHITE PROF KIT IN-OFFICE (35% HYDROGEN PEROXIDE) [Suspect]
     Active Substance: HYDROGEN PEROXIDE
     Indication: DENTAL COSMETIC PROCEDURE
     Dates: start: 20190807, end: 20190807

REACTIONS (12)
  - Lip swelling [None]
  - Bruxism [None]
  - Periodontal inflammation [None]
  - Bone graft [None]
  - Endodontic procedure [None]
  - Tooth abscess [None]
  - Gingival discomfort [None]
  - Gingival discolouration [None]
  - Tooth fracture [None]
  - Mouth ulceration [None]
  - Tooth extraction [None]
  - Gingival ulceration [None]

NARRATIVE: CASE EVENT DATE: 20190807
